FAERS Safety Report 4678905-6 (Version None)
Quarter: 2005Q2

REPORT INFORMATION
  Report Type: 
  Country: None (occurrence: None)
  Receive Date: 20050531
  Receipt Date: 20050520
  Transmission Date: 20051028
  Serious: Yes (Disabling, Other)
  Sender: FDA-Public Use
  Company Number: 2004-10-0376

PATIENT
  Age: 48 Year
  Sex: Female
  Weight: 68.9467 kg

DRUGS (2)
  1. INTRON A [Suspect]
     Indication: MALIGNANT MELANOMA
     Dosage: 35 MIU INTRAVENOUS
     Route: 042
     Dates: start: 20020107, end: 20020110
  2. VICODIN [Concomitant]

REACTIONS (12)
  - ABNORMAL BEHAVIOUR [None]
  - DENTAL CARIES [None]
  - EPILEPSY [None]
  - GENERAL PHYSICAL HEALTH DETERIORATION [None]
  - INFLUENZA LIKE ILLNESS [None]
  - INSOMNIA [None]
  - LOSS OF CONSCIOUSNESS [None]
  - MOTION SICKNESS [None]
  - NIGHTMARE [None]
  - ROAD TRAFFIC ACCIDENT [None]
  - SUICIDAL IDEATION [None]
  - TREMOR [None]
